FAERS Safety Report 9295172 (Version 2)
Quarter: 2013Q2

REPORT INFORMATION
  Report Type: Report from Study
  Country: TW (occurrence: TW)
  Receive Date: 20130517
  Receipt Date: 20130604
  Transmission Date: 20140414
  Serious: Yes (Death, Hospitalization, Other)
  Sender: FDA-Public Use
  Company Number: PHHY2013TW046081

PATIENT
  Age: 69 Year
  Sex: Female
  Weight: 56.1 kg

DRUGS (27)
  1. ZOLEDRONATE [Suspect]
     Indication: METASTASES TO BONE
     Dosage: 4 MG, UNK
     Route: 042
     Dates: start: 20121106
  2. ZOLEDRONATE [Suspect]
     Dosage: 4 MG, UNK
     Route: 042
     Dates: start: 20130430
  3. MELPHALAN [Concomitant]
     Indication: PLASMA CELL MYELOMA
     Dosage: 4 MG, UNK
     Dates: start: 20120531, end: 20120603
  4. MELPHALAN [Concomitant]
     Dosage: 4 MG, UNK
     Dates: start: 201210, end: 201304
  5. THALIDOMIDE [Concomitant]
     Indication: PLASMA CELL MYELOMA
     Dosage: 100 MG, UNK
     Dates: start: 20120531, end: 20120618
  6. BORTEZOMIB [Concomitant]
     Indication: PLASMA CELL MYELOMA
     Dosage: 2.1 MG, UNK
     Dates: start: 20120619
  7. BORTEZOMIB [Concomitant]
     Dosage: 2.1 MG, UNK
     Dates: start: 20120622
  8. BORTEZOMIB [Concomitant]
     Dosage: 2.1 MG, UNK
     Dates: start: 20120626
  9. BORTEZOMIB [Concomitant]
     Dosage: 2.1 MG, UNK
     Dates: start: 20120629
  10. BORTEZOMIB [Concomitant]
     Dosage: 2.1 MG, UNK
     Dates: start: 20120710
  11. BORTEZOMIB [Concomitant]
     Dosage: 2.1 MG, UNK
     Dates: start: 20120713
  12. BORTEZOMIB [Concomitant]
     Dosage: 2.1 MG, UNK
     Dates: start: 20120717
  13. BORTEZOMIB [Concomitant]
     Dosage: 2.1 MG, UNK
     Dates: start: 20120720
  14. BORTEZOMIB [Concomitant]
     Dosage: 2.1 MG, UNK
     Dates: start: 20120731
  15. BORTEZOMIB [Concomitant]
     Dosage: 2.1 MG, UNK
     Dates: start: 20120803
  16. BORTEZOMIB [Concomitant]
     Dosage: 2.1 MG, UNK
     Dates: start: 20120807
  17. BORTEZOMIB [Concomitant]
     Dosage: 2.1 MG, UNK
     Dates: start: 20120810
  18. BORTEZOMIB [Concomitant]
     Dosage: 2.1 MG, UNK
     Dates: start: 20120821
  19. BORTEZOMIB [Concomitant]
     Dosage: 2.1 MG, UNK
     Dates: start: 20120824
  20. BORTEZOMIB [Concomitant]
     Dosage: 2.1 MG, UNK
     Dates: start: 20120528
  21. BORTEZOMIB [Concomitant]
     Dosage: 2.1 MG, UNK
     Dates: start: 20120831
  22. BORTEZOMIB [Concomitant]
     Dosage: 1.9 MG, UNK
     Dates: start: 20130513
  23. BORTEZOMIB [Concomitant]
     Dosage: 1.9 MG, UNK
     Dates: start: 20130516
  24. BORTEZOMIB [Concomitant]
     Dosage: 1.9 MG, UNK
     Dates: start: 20130520
  25. BORTEZOMIB [Concomitant]
     Dosage: 1.9 MG, UNK
     Dates: start: 20130523
  26. MANNITOL [Concomitant]
     Dosage: 75 ML, Q2H
  27. DEXAM//DEXAMETHASONE [Concomitant]
     Dosage: 2 AMPS Q2H
     Dates: start: 20130523

REACTIONS (27)
  - Cerebral haemorrhage [Fatal]
  - General physical health deterioration [Fatal]
  - Loss of consciousness [Fatal]
  - Thrombocytopenia [Not Recovered/Not Resolved]
  - Disease recurrence [Not Recovered/Not Resolved]
  - Shock [Unknown]
  - Coma [Unknown]
  - Osteolysis [Unknown]
  - Vertigo [Unknown]
  - Red cell distribution width increased [Unknown]
  - Productive cough [Unknown]
  - Muscular weakness [Unknown]
  - Cachexia [Unknown]
  - Altered state of consciousness [Unknown]
  - Aspartate aminotransferase increased [Unknown]
  - Blood immunoglobulin G increased [Unknown]
  - Alanine aminotransferase increased [Unknown]
  - Light chain analysis increased [Unknown]
  - Lymphocyte count decreased [Unknown]
  - Nucleated red cells [Unknown]
  - Myelocyte count increased [Unknown]
  - Platelet count decreased [Unknown]
  - Bone pain [Unknown]
  - Dizziness [Unknown]
  - Cough [Unknown]
  - Vomiting [Unknown]
  - Malaise [Unknown]
